FAERS Safety Report 19375725 (Version 1)
Quarter: 2021Q2

REPORT INFORMATION
  Report Type: Spontaneous
  Country: ES (occurrence: ES)
  Receive Date: 20210605
  Receipt Date: 20210605
  Transmission Date: 20210717
  Serious: Yes (Other)
  Sender: FDA-Public Use
  Company Number: ES-SUN PHARMACEUTICAL INDUSTRIES LTD-2021RR-299495

PATIENT
  Age: 71 Year
  Sex: Male

DRUGS (8)
  1. TAMSULOSIN [Suspect]
     Active Substance: TAMSULOSIN
     Indication: PRODUCT USED FOR UNKNOWN INDICATION
     Dosage: 0.4 MILLIGRAM, QD
     Route: 048
     Dates: start: 20210313, end: 20210325
  2. OMEPRAZOL 20 MG 28 CAPSULAS [Concomitant]
     Indication: PRODUCT USED FOR UNKNOWN INDICATION
     Dosage: UNK
     Route: 065
  3. SIMBRINZA 10MG/ML + 2MG/ML COLIRIO EN SUSPENSION FRASCO DE 8 ML QUE... [Concomitant]
     Indication: PRODUCT USED FOR UNKNOWN INDICATION
     Route: 065
  4. TRAJENTA 5 MG COMPRIMIDOS RECUBIERTOS CON PELICULA, 30 COMPRIMIDOS [Concomitant]
     Active Substance: LINAGLIPTIN
     Indication: PRODUCT USED FOR UNKNOWN INDICATION
     Dosage: UNK
     Route: 065
  5. PRAVAFENIX 40 MG/160 MG CAPSULAS DURAS 30 CAPSULAS [Concomitant]
     Indication: PRODUCT USED FOR UNKNOWN INDICATION
     Dosage: UNK
     Route: 065
  6. DAKTARIN CREMA , TUBO CON 40 G [Concomitant]
     Indication: PRODUCT USED FOR UNKNOWN INDICATION
     Dosage: UNK
     Route: 065
  7. DUOTRAV [Concomitant]
     Active Substance: TIMOLOL MALEATE\TRAVOPROST
     Indication: PRODUCT USED FOR UNKNOWN INDICATION
     Dosage: UNK
     Route: 065
  8. CAPENON 40 MG/10 MG COMPRIMIDOS RECUBIERTOS CON PELICULA , 28 COMPR... [Concomitant]
     Indication: PRODUCT USED FOR UNKNOWN INDICATION
     Dosage: UNK
     Route: 065

REACTIONS (2)
  - Epidermolysis [Unknown]
  - Epidermolysis [Recovered/Resolved]

NARRATIVE: CASE EVENT DATE: 20210323
